FAERS Safety Report 16232554 (Version 7)
Quarter: 2020Q3

REPORT INFORMATION
  Report Type: Report from Study
  Country: AR (occurrence: AR)
  Receive Date: 20190424
  Receipt Date: 20200821
  Transmission Date: 20201102
  Serious: Yes (Hospitalization, Other)
  Sender: FDA-Public Use
  Company Number: AR-ACTELION-A-CH2019-189419

PATIENT
  Age: 7 Year
  Sex: Female
  Weight: 18 kg

DRUGS (2)
  1. MIGLUSTAT. [Suspect]
     Active Substance: MIGLUSTAT
     Dosage: 300 MG, QD
     Route: 048
     Dates: start: 20190801
  2. MIGLUSTAT. [Suspect]
     Active Substance: MIGLUSTAT
     Indication: NIEMANN-PICK DISEASE
     Dosage: 200 MG, QD
     Route: 048
     Dates: start: 20150801

REACTIONS (13)
  - Dysphagia [Unknown]
  - Eating disorder [Recovering/Resolving]
  - Gastrointestinal tube insertion [Recovering/Resolving]
  - Choking [Recovering/Resolving]
  - Productive cough [Recovering/Resolving]
  - Gastrostomy [Unknown]
  - Retching [Recovering/Resolving]
  - Nasopharyngitis [Recovering/Resolving]
  - Conjunctivitis [Unknown]
  - Cough [Recovering/Resolving]
  - Nasal congestion [Unknown]
  - Wheezing [Unknown]
  - Bronchitis [Recovering/Resolving]

NARRATIVE: CASE EVENT DATE: 201906
